FAERS Safety Report 23326173 (Version 10)
Quarter: 2024Q3

REPORT INFORMATION
  Report Type: Spontaneous
  Country: AR (occurrence: AR)
  Receive Date: 20231221
  Receipt Date: 20240926
  Transmission Date: 20241017
  Serious: Yes (Other)
  Sender: MYLAN
  Company Number: AR-MYLANLABS-2023M1089020

PATIENT
  Age: 30 Year
  Sex: Female

DRUGS (1)
  1. CLOZAPINE [Suspect]
     Active Substance: CLOZAPINE
     Indication: Product used for unknown indication
     Dosage: UNK (16-AUG-2023 APPROXIMATE DATE)
     Route: 065
     Dates: start: 202308

REACTIONS (10)
  - Neutropenia [Recovered/Resolved]
  - Mean cell volume increased [Not Recovered/Not Resolved]
  - Leukocytosis [Recovered/Resolved]
  - Neutrophil count increased [Not Recovered/Not Resolved]
  - Monocyte count increased [Recovered/Resolved]
  - Lymphocyte count increased [Recovering/Resolving]
  - Eosinophil count decreased [Not Recovered/Not Resolved]
  - Haemoglobin decreased [Recovered/Resolved]
  - Red blood cell count decreased [Not Recovered/Not Resolved]
  - Haematocrit decreased [Recovered/Resolved]

NARRATIVE: CASE EVENT DATE: 20230816
